FAERS Safety Report 8833109 (Version 1)
Quarter: 2012Q4

REPORT INFORMATION
  Report Type: 
  Country: US (occurrence: US)
  Receive Date: 20121010
  Receipt Date: 20121010
  Transmission Date: 20130627
  Serious: Yes (Hospitalization, Other)
  Sender: FDA-Public Use
  Company Number: US-VALEANT-2012VX004419

PATIENT
  Age: 80 Year
  Sex: Male

DRUGS (2)
  1. LIBRIUM [Suspect]
     Indication: DRUG USE FOR UNKNOWN INDICATION
     Route: 065
  2. LEXISCAN [Suspect]
     Indication: MYOCARDIAL PERFUSION SCAN
     Dosage: Dose unit:0.08
     Route: 042
     Dates: start: 20120911, end: 20120911

REACTIONS (2)
  - Unresponsive to stimuli [Recovered/Resolved with Sequelae]
  - Apraxia [Recovered/Resolved with Sequelae]
